FAERS Safety Report 21588086 (Version 16)
Quarter: 2024Q1

REPORT INFORMATION
  Report Type: Spontaneous
  Country: US (occurrence: US)
  Receive Date: 20221114
  Receipt Date: 20240105
  Transmission Date: 20240410
  Serious: Yes (Other)
  Sender: FDA-Public Use
  Company Number: US-PFIZER INC-PV202200099063

PATIENT
  Age: 75 Year
  Sex: Female

DRUGS (5)
  1. PREMARIN [Suspect]
     Active Substance: ESTROGENS, CONJUGATED
     Indication: Vulvovaginal dryness
     Dosage: 0.625MG, IT DEPENDS ON HOW OFTEN USE IT
  2. PREMARIN [Suspect]
     Active Substance: ESTROGENS, CONJUGATED
     Indication: Hot flush
     Dosage: 0.625 MG, 1X/DAY
     Route: 048
  3. PREMPRO [Suspect]
     Active Substance: ESTROGENS, CONJUGATED\MEDROXYPROGESTERONE ACETATE
     Indication: Hot flush
     Dosage: 100 MG, 1X/DAY
     Route: 048
  4. PREMPRO [Suspect]
     Active Substance: ESTROGENS, CONJUGATED\MEDROXYPROGESTERONE ACETATE
     Dosage: UNK, 1X/DAY (0.625MG/2.5MG TABLET ONCE A DAY BY MOUTH  )
     Route: 048
  5. CELEBREX [Concomitant]
     Active Substance: CELECOXIB
     Indication: Arthritis
     Dosage: 200 MG, 1X/DAY (200MG ONCE A DAY BY MOUTH)
     Route: 048

REACTIONS (8)
  - Near death experience [Recovered/Resolved]
  - Food poisoning [Recovered/Resolved]
  - Somnolence [Recovered/Resolved]
  - Circadian rhythm sleep disorder [Recovered/Resolved]
  - Dysphonia [Recovered/Resolved]
  - Illness [Recovered/Resolved]
  - Vomiting [Recovered/Resolved]
  - Product prescribing error [Unknown]

NARRATIVE: CASE EVENT DATE: 20221101
